FAERS Safety Report 5491712-X (Version None)
Quarter: 2007Q4

REPORT INFORMATION
  Report Type: 
  Country: None (occurrence: None)
  Receive Date: 20071018
  Receipt Date: 20071018
  Transmission Date: 20080405
  Serious: No
  Sender: FDA-Public Use
  Company Number: None

PATIENT
  Age: 25 Year
  Sex: Male
  Weight: 77 kg

DRUGS (14)
  1. LINEZOLID [Suspect]
     Indication: INFECTION
     Dosage: 600 MG IV BID
     Route: 042
     Dates: start: 20070809, end: 20070825
  2. MIRTAZAPINE [Suspect]
     Indication: DEPRESSION
     Dosage: 15 MG PO QHS
     Route: 048
     Dates: start: 20070816
  3. MIRTAZAPINE [Suspect]
     Indication: DEPRESSION
     Dosage: 15 MG PO QHS
     Route: 048
     Dates: start: 20070820
  4. MIRTAZAPINE [Suspect]
     Indication: DEPRESSION
     Dosage: 15 MG PO QHS
     Route: 048
     Dates: start: 20070821
  5. APAP TAB [Concomitant]
  6. ERYTHROMYCIN [Concomitant]
  7. HYDROCORTISONE [Concomitant]
  8. LORAZEPAM [Concomitant]
  9. MEROPENEM [Concomitant]
  10. RANITIDINE HCL [Concomitant]
  11. CASPOFUNGIN [Concomitant]
  12. OXYBUTYNIN CHLORIDE [Concomitant]
  13. OCTREOTIDE ACETATE [Concomitant]
  14. DIPHENHYDRAMINE HCL [Concomitant]

REACTIONS (7)
  - AGITATION [None]
  - BLOOD PRESSURE INCREASED [None]
  - CONFUSIONAL STATE [None]
  - HEADACHE [None]
  - HEART RATE INCREASED [None]
  - REFUSAL OF TREATMENT BY PATIENT [None]
  - SOMNOLENCE [None]
